FAERS Safety Report 12125837 (Version 1)
Quarter: 2016Q1

REPORT INFORMATION
  Report Type: Spontaneous
  Country: DE (occurrence: DE)
  Receive Date: 20160229
  Receipt Date: 20160229
  Transmission Date: 20160526
  Serious: Yes (Other)
  Sender: FDA-Public Use
  Company Number: DE-AMGEN-DEUSP2016022182

PATIENT
  Age: 70 Year
  Sex: Female

DRUGS (1)
  1. PROLIA [Suspect]
     Active Substance: DENOSUMAB
     Indication: OSTEOPOROSIS
     Dosage: UNK
     Route: 065

REACTIONS (11)
  - Rib fracture [Unknown]
  - Fractured coccyx [Unknown]
  - Vertigo [Unknown]
  - Nasal congestion [Unknown]
  - Weight increased [Unknown]
  - Pain [Unknown]
  - Swelling face [Unknown]
  - Fall [Unknown]
  - Temporomandibular joint syndrome [Unknown]
  - Rash [Unknown]
  - Fatigue [Unknown]
